FAERS Safety Report 25030044 (Version 2)
Quarter: 2025Q2

REPORT INFORMATION
  Report Type: Report from Study
  Country: CO (occurrence: CO)
  Receive Date: 20250303
  Receipt Date: 20250402
  Transmission Date: 20250717
  Serious: Yes (Hospitalization)
  Sender: RECORDATI
  Company Number: CO-RECORDATI-2024006029

PATIENT
  Age: 33 Year
  Sex: Female
  Weight: 115 kg

DRUGS (7)
  1. SIGNIFOR LAR [Suspect]
     Active Substance: PASIREOTIDE PAMOATE
     Indication: Acromegaly
     Dosage: 40 MILLIGRAM, QM
     Route: 030
     Dates: start: 202208, end: 202404
  2. SIGNIFOR LAR [Suspect]
     Active Substance: PASIREOTIDE PAMOATE
     Dosage: 40 MILLIGRAM, QM
     Route: 030
     Dates: start: 20240826, end: 2024
  3. SIGNIFOR LAR [Suspect]
     Active Substance: PASIREOTIDE PAMOATE
     Route: 030
     Dates: start: 2024, end: 20241126
  4. CYANOCOBALAMIN [Concomitant]
     Active Substance: CYANOCOBALAMIN
     Indication: Vitamin supplementation
     Route: 030
  5. LEVOTHYROXINE [Concomitant]
     Active Substance: LEVOTHYROXINE
     Indication: Central hypothyroidism
     Dosage: 100 MICROGRAM, QD (ON EMPTY STOMACH)
  6. LANREOTIDE [Concomitant]
     Active Substance: LANREOTIDE
     Indication: Acromegaly
     Dates: start: 202209
  7. CABERGOLINE [Concomitant]
     Active Substance: CABERGOLINE
     Indication: Product used for unknown indication

REACTIONS (6)
  - Tinnitus [Recovered/Resolved]
  - Headache [Recovered/Resolved]
  - Headache [Not Recovered/Not Resolved]
  - Vomiting [Recovered/Resolved]
  - Fall [Recovered/Resolved with Sequelae]
  - Off label use [Recovered/Resolved]

NARRATIVE: CASE EVENT DATE: 20220801
